FAERS Safety Report 5509972-5 (Version None)
Quarter: 2007Q4

REPORT INFORMATION
  Report Type: 
  Country: None (occurrence: None)
  Receive Date: 20071108
  Receipt Date: 20070110
  Transmission Date: 20080405
  Serious: No
  Sender: FDA-Public Use
  Company Number: US-ABBOTT-07P-163-0355779-00

PATIENT
  Sex: Male

DRUGS (9)
  1. BIAXIN [Suspect]
     Indication: SINUSITIS
     Dates: start: 20061211
  2. BYETTA [Suspect]
     Indication: TYPE 2 DIABETES MELLITUS
     Route: 058
     Dates: start: 20061112, end: 20061207
  3. BYETTA [Suspect]
     Route: 058
     Dates: start: 20061207
  4. LEVOFLOXACIN [Suspect]
     Indication: SINUSITIS
     Dates: start: 20061215
  5. ACTOS [Concomitant]
     Indication: DRUG USE FOR UNKNOWN INDICATION
     Dates: start: 20061001
  6. METFORMIN HCL [Concomitant]
     Indication: DRUG USE FOR UNKNOWN INDICATION
  7. INSULIN [Concomitant]
     Indication: DRUG USE FOR UNKNOWN INDICATION
  8. ZETIA [Concomitant]
     Indication: DRUG USE FOR UNKNOWN INDICATION
  9. ATORVASTATIN CALCIUM [Concomitant]
     Indication: DRUG USE FOR UNKNOWN INDICATION

REACTIONS (3)
  - BLOOD GLUCOSE DECREASED [None]
  - FEELING ABNORMAL [None]
  - SINUSITIS [None]
